FAERS Safety Report 24241841 (Version 2)
Quarter: 2024Q3

REPORT INFORMATION
  Report Type: Spontaneous
  Country: US (occurrence: US)
  Receive Date: 20240823
  Receipt Date: 20240911
  Transmission Date: 20241016
  Serious: Yes (Other)
  Sender: COOPERSURGICAL
  Company Number: US-COOPERSURGICAL, INC.-2024CPS002468

PATIENT
  Age: 31 Year
  Sex: Female
  Weight: 58.05 kg

DRUGS (1)
  1. PARAGARD T 380A [Suspect]
     Active Substance: COPPER
     Indication: Contraception
     Dosage: UNK
     Route: 015
     Dates: start: 20240809, end: 20240809

REACTIONS (5)
  - Uterine haemorrhage [Recovered/Resolved]
  - Procedural pain [Recovered/Resolved]
  - Haemoglobin decreased [Recovering/Resolving]
  - Abdominal pain [Recovered/Resolved]
  - Nausea [Unknown]

NARRATIVE: CASE EVENT DATE: 20240809
